FAERS Safety Report 5251411-6 (Version None)
Quarter: 2007Q1

REPORT INFORMATION
  Report Type: 
  Country: None (occurrence: None)
  Receive Date: 20070228
  Receipt Date: 20060505
  Transmission Date: 20070707
  Serious: No
  Sender: FDA-Public Use
  Company Number: US-GLAXOSMITHKLINE-A0604512A

PATIENT
  Age: 54 Year
  Sex: Female

DRUGS (6)
  1. LAMICTAL [Suspect]
     Indication: BIPOLAR DISORDER
     Dosage: 25MG PER DAY
     Route: 048
     Dates: start: 20060505
  2. LITHIUM CARBONATE [Concomitant]
  3. NEURONTIN [Concomitant]
  4. ZESTRIL [Concomitant]
  5. SYNTHROID [Concomitant]
  6. ATIVAN [Concomitant]

REACTIONS (2)
  - ANOREXIA [None]
  - FAECES DISCOLOURED [None]
